FAERS Safety Report 5742341-1 (Version None)
Quarter: 2008Q2

REPORT INFORMATION
  Report Type: 
  Country: None (occurrence: None)
  Receive Date: 20080519
  Receipt Date: 20080508
  Transmission Date: 20081010
  Serious: Yes (Hospitalization, Other)
  Sender: FDA-Public Use
  Company Number: GB-JNJFOC-20070502296

PATIENT
  Sex: Female
  Weight: 58 kg

DRUGS (9)
  1. REMICADE [Suspect]
     Indication: RHEUMATOID ARTHRITIS
     Route: 042
  2. ENBREL [Suspect]
     Indication: RHEUMATOID ARTHRITIS
     Route: 058
  3. PREDNISOLONE [Suspect]
     Indication: RHEUMATOID ARTHRITIS
     Route: 048
  4. AMITRIPTILINE [Concomitant]
  5. CO-DYDRAMOL [Concomitant]
     Indication: ARTHRALGIA
     Route: 048
  6. FOSAMAX [Concomitant]
     Route: 048
  7. PLAQUENIL [Concomitant]
  8. ZOPICLONE [Concomitant]
     Indication: SLEEP DISORDER
     Route: 048
  9. LISINOPRIL [Concomitant]
     Indication: HYPERTENSION
     Route: 048

REACTIONS (2)
  - BASAL CELL CARCINOMA [None]
  - ECZEMA [None]
